FAERS Safety Report 6395827-3 (Version None)
Quarter: 2009Q4

REPORT INFORMATION
  Report Type: 
  Country: None (occurrence: None)
  Receive Date: 20091009
  Receipt Date: 20090724
  Transmission Date: 20100525
  Serious: No
  Sender: FDA-Public Use
  Company Number: A0794070A

PATIENT
  Sex: Female

DRUGS (11)
  1. TYKERB [Suspect]
     Indication: BREAST CANCER
     Dosage: 5TAB PER DAY
     Route: 048
  2. RADIATION [Suspect]
     Indication: BREAST CANCER
     Route: 065
     Dates: start: 20090602, end: 20090629
  3. LEVETIRACETAM [Suspect]
     Dosage: 250MG TWICE PER DAY
     Route: 048
     Dates: start: 20090703
  4. ENALAPRIL MALEATE [Concomitant]
  5. PRILOSEC [Concomitant]
  6. CLONAZEPAM [Concomitant]
  7. CITALOPRAM HYDROBROMIDE [Concomitant]
  8. CITRUCEL [Concomitant]
  9. TYLENOL (CAPLET) [Concomitant]
  10. CENTRUM SILVER [Concomitant]
  11. ZOMETA [Concomitant]
     Route: 042

REACTIONS (7)
  - DECREASED APPETITE [None]
  - DIARRHOEA [None]
  - FATIGUE [None]
  - NAUSEA [None]
  - PHOTOPHOBIA [None]
  - VOMITING [None]
  - WEIGHT DECREASED [None]
